FAERS Safety Report 17576708 (Version 2)
Quarter: 2020Q2

REPORT INFORMATION
  Report Type: Other
  Country: US (occurrence: US)
  Receive Date: 20200324
  Receipt Date: 20200622
  Transmission Date: 20200713
  Serious: No
  Sender: FDA-Public Use
  Company Number: US-ACORDA-ACO_163995_2020

PATIENT
  Age: 79 Year
  Sex: Female

DRUGS (2)
  1. INBRIJA [Suspect]
     Active Substance: LEVODOPA
     Indication: ON AND OFF PHENOMENON
  2. INBRIJA [Suspect]
     Active Substance: LEVODOPA
     Indication: PARKINSON^S DISEASE
     Dosage: 2 CAPSULES, PRN (UP TO 4 TIMES DAILY)
     Dates: start: 20190426

REACTIONS (2)
  - Rhinorrhoea [Unknown]
  - Nasal discharge discolouration [Unknown]

NARRATIVE: CASE EVENT DATE: 202001
